FAERS Safety Report 5519973-9 (Version None)
Quarter: 2007Q4

REPORT INFORMATION
  Report Type: 
  Country: None (occurrence: None)
  Receive Date: 20071116
  Receipt Date: 20070703
  Transmission Date: 20080405
  Serious: No
  Sender: FDA-Public Use
  Company Number: US-BRISTOL-MYERS SQUIBB COMPANY-13834296

PATIENT

DRUGS (1)
  1. QUESTRAN [Suspect]
     Route: 048

REACTIONS (1)
  - INSOMNIA [None]
